FAERS Safety Report 5598768-4 (Version None)
Quarter: 2008Q1

REPORT INFORMATION
  Report Type: 
  Country: None (occurrence: None)
  Receive Date: 20080122
  Receipt Date: 20080111
  Transmission Date: 20080703
  Serious: Yes (Congenital Anomaly)
  Sender: FDA-Public Use
  Company Number: GB-RANBAXY-2008RR-12549

PATIENT

DRUGS (2)
  1. METFORMIN 500MG TABLETS [Suspect]
  2. CLOMID [Concomitant]

REACTIONS (1)
  - CLEFT PALATE [None]
